FAERS Safety Report 13142806 (Version 2)
Quarter: 2017Q2

REPORT INFORMATION
  Report Type: Spontaneous
  Country: JP (occurrence: JP)
  Receive Date: 20170123
  Receipt Date: 20170526
  Transmission Date: 20170830
  Serious: Yes (Hospitalization)
  Sender: FDA-Public Use
  Company Number: JP-ABBVIE-17P-087-1842536-00

PATIENT
  Age: 63 Year
  Sex: Female

DRUGS (2)
  1. TOCILIZUMAB [Concomitant]
     Active Substance: TOCILIZUMAB
     Indication: RHEUMATIC DISORDER
     Route: 065
  2. VIEKIRAX [Suspect]
     Active Substance: OMBITASVIR\PARITAPREVIR\RITONAVIR
     Indication: CHRONIC HEPATITIS C
     Route: 048
     Dates: start: 20161125

REACTIONS (5)
  - Liver function test increased [Unknown]
  - Oedema [Recovered/Resolved]
  - Rheumatic disorder [Unknown]
  - Blood bilirubin increased [Recovering/Resolving]
  - Alanine aminotransferase increased [Unknown]

NARRATIVE: CASE EVENT DATE: 20161221
